FAERS Safety Report 4329958-6 (Version None)
Quarter: 2004Q2

REPORT INFORMATION
  Report Type: 
  Country: None (occurrence: None)
  Receive Date: 20040401
  Receipt Date: 20040325
  Transmission Date: 20050107
  Serious: Yes (Other)
  Sender: FDA-Public Use
  Company Number: US-MERCK-0403USA02385

PATIENT
  Age: 57 Year
  Sex: Male

DRUGS (2)
  1. FOSAMAX [Suspect]
     Indication: OSTEOPENIA
     Route: 048
     Dates: start: 19990101, end: 20020101
  2. FOSAMAX [Suspect]
     Route: 048
     Dates: start: 20040101

REACTIONS (1)
  - TESTIS CANCER [None]
